FAERS Safety Report 13291216 (Version 1)
Quarter: 2017Q1

REPORT INFORMATION
  Report Type: Spontaneous
  Country: US (occurrence: US)
  Receive Date: 20170302
  Receipt Date: 20170302
  Transmission Date: 20170428
  Serious: No
  Sender: FDA-Public Use
  Company Number: US-PERRIGO-16US014173

PATIENT
  Age: 72 Year
  Sex: Male
  Weight: 80.73 kg

DRUGS (1)
  1. LOPERAMIDE HYDROCHLORIDE. [Suspect]
     Active Substance: LOPERAMIDE HYDROCHLORIDE
     Indication: FREQUENT BOWEL MOVEMENTS
     Dosage: 1 MG, BID
     Route: 048
     Dates: start: 201602

REACTIONS (2)
  - Incorrect drug administration duration [Unknown]
  - Off label use [Unknown]

NARRATIVE: CASE EVENT DATE: 201602
